FAERS Safety Report 4781677-8 (Version None)
Quarter: 2005Q3

REPORT INFORMATION
  Report Type: 
  Country: None (occurrence: None)
  Receive Date: 20050927
  Receipt Date: 20050913
  Transmission Date: 20060218
  Serious: Yes (Death)
  Sender: FDA-Public Use
  Company Number: 2005-05-0006

PATIENT
  Sex: Male

DRUGS (11)
  1. QVAR 40 [Suspect]
  2. FUROSEMIDE (FUROSEMIDE) [Suspect]
     Dosage: 80MG QAM, ORAL
     Route: 048
  3. SPIRIVA [Suspect]
     Dosage: INHALATION
     Route: 055
  4. ALLOPURINOL [Suspect]
     Dosage: 200MG, ORAL
     Route: 048
  5. DIGOXIN [Suspect]
     Dosage: 250MG, ORAL
     Route: 048
  6. PANTOPRAZOLE [Suspect]
     Dosage: 20MG, ORAL
     Route: 048
  7. COVERSYL (PERINDOPRIL) [Suspect]
     Dosage: 4MG
  8. SIMVASTATIN [Suspect]
     Dosage: 40MG QHS, ORAL
     Route: 048
  9. WARFARIN [Suspect]
     Dosage: ORAL
     Route: 048
  10. VENTOLIN [Suspect]
     Dosage: INHALATION
     Route: 055
  11. PARACETAMOL [Suspect]
     Dosage: ORAL
     Route: 048

REACTIONS (1)
  - AORTIC DISSECTION [None]
